FAERS Safety Report 4556822-X (Version None)
Quarter: 2005Q1

REPORT INFORMATION
  Report Type: 
  Country: None (occurrence: None)
  Receive Date: 20050114
  Receipt Date: 20050105
  Transmission Date: 20050727
  Serious: Yes (Hospitalization)
  Sender: FDA-Public Use
  Company Number: 2005-124010-NL

PATIENT
  Age: 79 Year
  Sex: Female

DRUGS (9)
  1. MIRTAZAPINE [Suspect]
     Indication: DEPRESSION
     Dosage: 30 MG
     Route: 048
     Dates: start: 20031208, end: 20041216
  2. PEPSANE [Suspect]
     Indication: GASTROINTESTINAL DISORDER
     Dosage: 2 DF
     Route: 048
     Dates: start: 20041202, end: 20041217
  3. MACROGOL [Suspect]
     Indication: GASTROINTESTINAL DISORDER
     Dosage: 5.9 MG
     Route: 048
     Dates: start: 20041202, end: 20041217
  4. RABEPRAZOLE SODIUM [Suspect]
     Indication: GASTROINTESTINAL DISORDER
     Dosage: 20 MG
     Route: 048
     Dates: start: 20041202, end: 20041220
  5. DOMPERIDONE [Suspect]
     Indication: GASTROINTESTINAL DISORDER
     Dosage: 10 MG
     Route: 048
     Dates: start: 20041202, end: 20041217
  6. LOPRAZOLAMMESILATE [Concomitant]
  7. LITHIUM BROMIDE [Concomitant]
  8. SOTALOL HYDROCHLORIDE [Concomitant]
  9. IRBESARTAN [Concomitant]

REACTIONS (7)
  - ANAEMIA [None]
  - DEPRESSION [None]
  - GASTRIC ULCER [None]
  - HYPONATRAEMIA [None]
  - NAUSEA [None]
  - TREATMENT NONCOMPLIANCE [None]
  - VOMITING [None]
